FAERS Safety Report 23518877 (Version 1)
Quarter: 2024Q1

REPORT INFORMATION
  Report Type: Spontaneous
  Country: US (occurrence: None)
  Receive Date: 20240213
  Receipt Date: 20240213
  Transmission Date: 20240410
  Serious: Yes (Congenital Anomaly)
  Sender: FDA-Public Use
  Company Number: None

PATIENT
  Age: 0 Year
  Sex: Male
  Weight: 2.95 kg

DRUGS (3)
  1. QUETIAPINE [Suspect]
     Active Substance: QUETIAPINE
     Indication: Perinatal depression
     Dates: start: 20210820
  2. SERTRALINE [Concomitant]
     Active Substance: SERTRALINE HYDROCHLORIDE
  3. LABETALOL HYDROCHLORIDE [Concomitant]
     Active Substance: LABETALOL HYDROCHLORIDE

REACTIONS (7)
  - Developmental hip dysplasia [None]
  - Patent ductus arteriosus [None]
  - Atrial septal defect [None]
  - Hypoglycaemia neonatal [None]
  - Hypotonia [None]
  - Neonatal respiratory distress [None]
  - Foetal exposure during pregnancy [None]

NARRATIVE: CASE EVENT DATE: 20220510
